FAERS Safety Report 7057989-4 (Version None)
Quarter: 2010Q4

REPORT INFORMATION
  Report Type: 
  Country: None (occurrence: None)
  Receive Date: 20101022
  Receipt Date: 20101010
  Transmission Date: 20110411
  Serious: Yes (Hospitalization)
  Sender: FDA-Public Use
  Company Number: PHHY2010AE67748

PATIENT
  Age: 39 Year
  Sex: Male
  Weight: 110 kg

DRUGS (2)
  1. EXFORGE [Suspect]
     Indication: HYPERTENSION
     Dosage: 10 MG DAILY
     Route: 048
  2. CRESTOR [Concomitant]

REACTIONS (1)
  - SCROTAL SWELLING [None]
